FAERS Safety Report 17572233 (Version 1)
Quarter: 2020Q1

REPORT INFORMATION
  Report Type: Spontaneous
  Country: US (occurrence: US)
  Receive Date: 20200323
  Receipt Date: 20200323
  Transmission Date: 20200409
  Serious: Yes (Hospitalization, Disabling, Other)
  Sender: FDA-Public Use
  Company Number: US-SA-2020SA071185

PATIENT
  Age: 18 Year
  Sex: Male
  Weight: 55.2 kg

DRUGS (6)
  1. PROPRANOLOL [Concomitant]
     Active Substance: PROPRANOLOL HYDROCHLORIDE
     Dosage: 10 MG, PRN
     Route: 065
  2. PROPRANOLOL [Concomitant]
     Active Substance: PROPRANOLOL HYDROCHLORIDE
     Indication: INTENTION TREMOR
     Dosage: 60 MG, QD
     Route: 065
  3. INDOMETHACIN [INDOMETACIN] [Concomitant]
     Active Substance: INDOMETHACIN
     Dosage: 25 MG, BID
     Route: 065
  4. CEREZYME [Suspect]
     Active Substance: IMIGLUCERASE
     Indication: GAUCHER^S DISEASE TYPE III
     Dosage: 3200 U, QOW (60U/KG)
     Route: 041
  5. KEPPRA [Concomitant]
     Active Substance: LEVETIRACETAM
     Indication: EPILEPSY
     Dosage: 1000 MG, BID
     Route: 065
  6. KEPPRA [Concomitant]
     Active Substance: LEVETIRACETAM
     Dosage: 500 MG, BID
     Route: 065

REACTIONS (13)
  - Loss of personal independence in daily activities [Unknown]
  - Autonomic nervous system imbalance [Unknown]
  - Electroencephalogram abnormal [Unknown]
  - Fall [Unknown]
  - Neurological symptom [Unknown]
  - Tremor [Unknown]
  - Condition aggravated [Unknown]
  - Dizziness [Unknown]
  - Partial seizures [Unknown]
  - Thinking abnormal [Unknown]
  - Dysphemia [Unknown]
  - Scoliosis [Unknown]
  - Headache [Unknown]

NARRATIVE: CASE EVENT DATE: 2020
